FAERS Safety Report 7549137-9 (Version None)
Quarter: 2011Q2

REPORT INFORMATION
  Report Type: 
  Country: None (occurrence: None)
  Receive Date: 20110615
  Receipt Date: 20110602
  Transmission Date: 20111010
  Serious: Yes (Other)
  Sender: FDA-Public Use
  Company Number: PHHY2011CA48116

PATIENT
  Sex: Female

DRUGS (7)
  1. NORVASC [Concomitant]
  2. ATENOLOL [Concomitant]
  3. ZOLEDRONIC ACID [Suspect]
     Dosage: 5 MG,
     Route: 042
     Dates: start: 20100823
  4. COLCHICINE [Concomitant]
  5. EXELON [Concomitant]
  6. RISPERDAL [Concomitant]
  7. LASIX [Concomitant]

REACTIONS (1)
  - AUTONOMIC NERVOUS SYSTEM IMBALANCE [None]
